FAERS Safety Report 6337512-X (Version None)
Quarter: 2009Q3

REPORT INFORMATION
  Report Type: 
  Country: None (occurrence: None)
  Receive Date: 20090902
  Receipt Date: 20090824
  Transmission Date: 20100115
  Serious: No
  Sender: FDA-Public Use
  Company Number: PHHY2009CA30240

PATIENT
  Sex: Male

DRUGS (2)
  1. ALISKIREN ALI+ [Suspect]
     Indication: HYPERTENSION
     Dosage: UNK
     Route: 048
     Dates: start: 20090406, end: 20090720
  2. ASPIRIN [Concomitant]
     Dosage: 80

REACTIONS (2)
  - HEADACHE [None]
  - PRIAPISM [None]
